FAERS Safety Report 6253912-0 (Version None)
Quarter: 2009Q2

REPORT INFORMATION
  Report Type: 
  Country: None (occurrence: None)
  Receive Date: 20090630
  Receipt Date: 20090630
  Transmission Date: 20091009
  Serious: Yes (Life-Threatening, Other)
  Sender: FDA-Public Use
  Company Number: None

PATIENT
  Age: 26 Year
  Sex: Female
  Weight: 61.2356 kg

DRUGS (2)
  1. DOXYCYCLINE HYCLATE [Suspect]
     Indication: PELVIC INFECTION
     Dosage: 100MG TWICE A DAY PO
     Route: 048
     Dates: start: 20090618, end: 20090624
  2. LAMOTRIGINE [Concomitant]

REACTIONS (17)
  - ABDOMINAL DISCOMFORT [None]
  - ABDOMINAL PAIN UPPER [None]
  - ANXIETY [None]
  - ASTHENIA [None]
  - BACK PAIN [None]
  - CHEST PAIN [None]
  - DEPRESSION [None]
  - DIARRHOEA [None]
  - DIZZINESS [None]
  - DYSPEPSIA [None]
  - FEELING COLD [None]
  - HEADACHE [None]
  - LIP DRY [None]
  - NAUSEA [None]
  - PANIC REACTION [None]
  - SUICIDAL IDEATION [None]
  - TINNITUS [None]
